FAERS Safety Report 22012554 (Version 1)
Quarter: 2023Q1

REPORT INFORMATION
  Report Type: Spontaneous
  Country: HU (occurrence: CN)
  Receive Date: 20230220
  Receipt Date: 20230220
  Transmission Date: 20230417
  Serious: Yes (Hospitalization)
  Sender: FDA-Public Use
  Company Number: HU-GLAXOSMITHKLINE-CN2023GSK026579

PATIENT

DRUGS (4)
  1. VIREAD [Suspect]
     Active Substance: TENOFOVIR DISOPROXIL FUMARATE
     Indication: Hepatitis B
     Dosage: UNK
  2. HEPTODIN [Suspect]
     Active Substance: LAMIVUDINE
     Indication: Hepatitis B
     Dosage: UNK
  3. HEPSERA [Suspect]
     Active Substance: ADEFOVIR DIPIVOXIL
     Indication: Hepatitis B
  4. ENTECAVIR [Suspect]
     Active Substance: ENTECAVIR
     Indication: Hepatitis B

REACTIONS (11)
  - Alanine aminotransferase increased [Unknown]
  - Hepatic function abnormal [Unknown]
  - Blood bilirubin increased [Unknown]
  - Blood bilirubin unconjugated increased [Unknown]
  - Aspartate aminotransferase increased [Unknown]
  - Alpha 1 foetoprotein increased [Unknown]
  - Platelet count decreased [Unknown]
  - Bilirubin conjugated increased [Unknown]
  - Drug resistance [Unknown]
  - Product use in unapproved indication [Unknown]
  - Suspected counterfeit product [Unknown]
